FAERS Safety Report 16091859 (Version 1)
Quarter: 2019Q1

REPORT INFORMATION
  Report Type: Spontaneous
  Country: US (occurrence: US)
  Receive Date: 20190319
  Receipt Date: 20190319
  Transmission Date: 20190418
  Serious: No
  Sender: FDA-Public Use
  Company Number: US-TAKEDA-2019TUS011753

PATIENT
  Sex: Female
  Weight: 77.11 kg

DRUGS (3)
  1. REVLIMID [Concomitant]
     Active Substance: LENALIDOMIDE
     Indication: CHEMOTHERAPY
     Dosage: 5 MILLIGRAM, QOD
     Route: 048
  2. VELCADE [Suspect]
     Active Substance: BORTEZOMIB
     Indication: NEOPLASM MALIGNANT
     Dosage: UNK
     Route: 065
  3. ZOMETA [Concomitant]
     Active Substance: ZOLEDRONIC ACID
     Indication: CHEMOTHERAPY
     Dosage: UNK

REACTIONS (1)
  - Neuropathy peripheral [Unknown]
